FAERS Safety Report 23061281 (Version 1)
Quarter: 2023Q4

REPORT INFORMATION
  Report Type: Spontaneous
  Country: IT (occurrence: IT)
  Receive Date: 20231013
  Receipt Date: 20231013
  Transmission Date: 20240110
  Serious: Yes (Other)
  Sender: FDA-Public Use
  Company Number: IT-MINISAL02-947453

PATIENT
  Age: 39 Year
  Sex: Male

DRUGS (2)
  1. AMOXICILLIN [Suspect]
     Active Substance: AMOXICILLIN
     Indication: Abscess bacterial
     Dosage: 1 G
     Route: 048
     Dates: start: 20230918, end: 20230923
  2. FUCIDIN [Suspect]
     Active Substance: FUSIDATE SODIUM
     Indication: Abscess bacterial
     Dosage: 20 MG/G
     Route: 003
     Dates: start: 20230918, end: 20230923

REACTIONS (2)
  - Drug hypersensitivity [Recovered/Resolved]
  - Hypotension [Recovered/Resolved]

NARRATIVE: CASE EVENT DATE: 20230920
